FAERS Safety Report 9268931 (Version 1)
Quarter: 2013Q2

REPORT INFORMATION
  Report Type: Spontaneous
  Country: US (occurrence: US)
  Receive Date: 20130503
  Receipt Date: 20130503
  Transmission Date: 20140414
  Serious: Yes (Other)
  Sender: FDA-Public Use
  Company Number: US-009507513-1305USA000564

PATIENT
  Sex: Male

DRUGS (3)
  1. SAPHRIS [Suspect]
     Indication: BIPOLAR I DISORDER
     Dosage: 10 MG, BID
     Route: 060
  2. SAPHRIS [Suspect]
     Dosage: 5 MG, BID
     Route: 060
  3. ZYPREXA [Concomitant]

REACTIONS (2)
  - Hypoacusis [Not Recovered/Not Resolved]
  - Dizziness [Recovered/Resolved]
